FAERS Safety Report 22386569 (Version 2)
Quarter: 2023Q2

REPORT INFORMATION
  Report Type: Other
  Country: JP (occurrence: JP)
  Receive Date: 20230531
  Receipt Date: 20230609
  Transmission Date: 20230721
  Serious: Yes (Hospitalization)
  Sender: FDA-Public Use
  Company Number: JP-ALVOGEN-2023091567

PATIENT
  Age: 56 Year
  Sex: Female

DRUGS (4)
  1. METHOTREXATE [Suspect]
     Active Substance: METHOTREXATE
     Indication: Rheumatoid arthritis
     Dosage: RELAPSE?OCCURRED 3 YEARS LATER, AND REQUIRED 10 MG/WEEK OF?MTX
  2. METHOTREXATE [Suspect]
     Active Substance: METHOTREXATE
     Indication: Rheumatoid arthritis
     Dosage: AFTER 17 YEARS, SHE STOPPED TAKING MTX?BECAUSE SHE HAD FELT NO PAIN FOR YEARS.
  3. METHOTREXATE [Suspect]
     Active Substance: METHOTREXATE
     Indication: Rheumatoid arthritis
     Dosage: RELAPSE?OCCURRED 3 YEARS LATER, AND REQUIRED 10 MG/WEEK OF?MTX
  4. SULFASALAZINE [Concomitant]
     Active Substance: SULFASALAZINE
     Indication: Rheumatoid arthritis
     Dosage: 1 G/DAY

REACTIONS (3)
  - Haemophagocytic lymphohistiocytosis [Recovered/Resolved]
  - Hodgkin^s disease [Unknown]
  - Lymphoproliferative disorder [Unknown]
